FAERS Safety Report 8053836-2 (Version None)
Quarter: 2012Q1

REPORT INFORMATION
  Report Type: 
  Country: None (occurrence: None)
  Receive Date: 20120118
  Receipt Date: 20120106
  Transmission Date: 20120608
  Serious: Yes (Other)
  Sender: FDA-Public Use
  Company Number: AU-PFIZER INC-2011272329

PATIENT
  Age: 47 Year
  Sex: Female
  Weight: 61.25 kg

DRUGS (7)
  1. METOCLOPRAMIDE [Concomitant]
     Indication: NAUSEA
     Dosage: UNK
     Dates: start: 20110811
  2. CLINDAMYCIN [Concomitant]
     Indication: INFECTION PROPHYLAXIS
     Dosage: UNK
     Dates: start: 20110701
  3. METOCLOPRAMIDE [Concomitant]
     Indication: VOMITING
  4. KEPPRA [Concomitant]
     Indication: CONVULSION
     Dosage: UNK
     Dates: start: 20110729
  5. VAGIFEM [Concomitant]
     Indication: MENOPAUSAL SYMPTOMS
     Dosage: UNK
     Dates: start: 20101201
  6. ENOXAPARIN SODIUM [Concomitant]
     Indication: THROMBOSIS
     Dosage: UNK
     Dates: start: 20110922, end: 20111103
  7. CRIZOTINIB [Suspect]
     Indication: NON-SMALL CELL LUNG CANCER
     Dosage: 250 MG, 2X/DAY
     Route: 048
     Dates: start: 20110811

REACTIONS (1)
  - PYRAMIDAL TRACT SYNDROME [None]
